FAERS Safety Report 21076115 (Version 3)
Quarter: 2023Q2

REPORT INFORMATION
  Report Type: Spontaneous
  Country: US (occurrence: US)
  Receive Date: 20220713
  Receipt Date: 20230616
  Transmission Date: 20230721
  Serious: Yes (Other)
  Sender: FDA-Public Use
  Company Number: US-PFIZER INC-PV202200017935

PATIENT
  Age: 59 Year
  Sex: Female
  Weight: 44.444 kg

DRUGS (7)
  1. NICOTROL [Suspect]
     Active Substance: NICOTINE
     Indication: Nicotine dependence
     Dosage: 1 DF, AS NEEDED (1 CARTRIDGE AS NEEDED 16 TIMES A DAY)
  2. ZITHROMAX [Concomitant]
     Active Substance: AZITHROMYCIN DIHYDRATE
     Dosage: 250 MG, DAILY
     Route: 048
  3. PREDNISONE [Concomitant]
     Active Substance: PREDNISONE
     Dosage: UNK, AS NEEDED
  4. PROAIR HFA [Concomitant]
     Active Substance: ALBUTEROL SULFATE
     Dosage: UNK, AS NEEDED
  5. SYMBICORT [Concomitant]
     Active Substance: BUDESONIDE\FORMOTEROL FUMARATE DIHYDRATE
     Dosage: UNK, 2X/DAY (160-4.5 MCG 2 PUFFS)
  6. THEOPHYLLINE [Concomitant]
     Active Substance: THEOPHYLLINE
     Dosage: 300 MG, DAILY
  7. SPIRIVA [Concomitant]
     Active Substance: TIOTROPIUM BROMIDE MONOHYDRATE
     Dosage: UNK, DAILY (2 PUFFS QD)

REACTIONS (2)
  - Emphysema [Unknown]
  - Off label use [Unknown]

NARRATIVE: CASE EVENT DATE: 20220101
